FAERS Safety Report 21674559 (Version 1)
Quarter: 2022Q4

REPORT INFORMATION
  Report Type: Spontaneous
  Country: US (occurrence: None)
  Receive Date: 20221201
  Receipt Date: 20221201
  Transmission Date: 20230113
  Serious: Yes (Life-Threatening, Hospitalization)
  Sender: FDA-Public Use
  Company Number: None

PATIENT
  Age: 73 Year
  Sex: Male
  Weight: 96.9 kg

DRUGS (3)
  1. DURVALUMAB [Suspect]
     Active Substance: DURVALUMAB
     Indication: Non-small cell lung cancer
     Dates: start: 20220701, end: 20221011
  2. PACLITAXEL [Concomitant]
     Active Substance: PACLITAXEL
     Dates: start: 20220125
  3. CARBOPLATIN [Concomitant]
     Active Substance: CARBOPLATIN
     Dates: start: 20220125

REACTIONS (3)
  - Dyspnoea [None]
  - Oxygen saturation decreased [None]
  - Gait disturbance [None]

NARRATIVE: CASE EVENT DATE: 20221107
